FAERS Safety Report 7441086-X (Version None)
Quarter: 2011Q2

REPORT INFORMATION
  Report Type: 
  Country: None (occurrence: None)
  Receive Date: 20110427
  Receipt Date: 20090723
  Transmission Date: 20111010
  Serious: Yes (Other)
  Sender: FDA-Public Use
  Company Number: DE-GENENTECH-317558

PATIENT

DRUGS (1)
  1. LUCENTIS [Suspect]
     Indication: MACULAR DEGENERATION
     Dosage: UNK
     Route: 031
     Dates: start: 20070903

REACTIONS (8)
  - VISUAL IMPAIRMENT [None]
  - EYE HAEMORRHAGE [None]
  - OPEN WOUND [None]
  - MACULAR DEGENERATION [None]
  - EYE INFLAMMATION [None]
  - CARDIAC DISORDER [None]
  - BASAL CELL CARCINOMA [None]
  - VISUAL ACUITY REDUCED [None]
